FAERS Safety Report 6111831-4 (Version None)
Quarter: 2009Q1

REPORT INFORMATION
  Report Type: 
  Country: None (occurrence: None)
  Receive Date: 20090311
  Receipt Date: 20090303
  Transmission Date: 20090719
  Serious: Yes (Hospitalization)
  Sender: FDA-Public Use
  Company Number: AU-PFIZER INC-2006105530

PATIENT

DRUGS (11)
  1. SUNITINIB MALATE [Suspect]
     Indication: METASTATIC RENAL CELL CARCINOMA
     Dosage: 50 MG, 1X/DAY
     Route: 048
     Dates: start: 20060816, end: 20060830
  2. OXYCONTIN [Concomitant]
     Route: 048
     Dates: start: 20060701, end: 20060825
  3. ATORVASTATIN [Concomitant]
     Route: 048
     Dates: start: 20000101
  4. AMLODIPINE [Concomitant]
     Route: 048
     Dates: start: 20000101
  5. ENDONE [Concomitant]
     Route: 048
     Dates: start: 20060701
  6. PARACETAMOL [Concomitant]
     Route: 048
     Dates: start: 20060401
  7. COLOXYL [Concomitant]
     Route: 048
     Dates: start: 20060701
  8. NULYTELY [Concomitant]
     Route: 048
     Dates: start: 20060701
  9. ISCOVER [Concomitant]
     Route: 048
     Dates: start: 20000101
  10. ALL OTHER THERAPEUTIC PRODUCTS [Concomitant]
     Route: 048
     Dates: start: 20060830, end: 20060830
  11. SENNA [Concomitant]
     Route: 048
     Dates: start: 20060701

REACTIONS (3)
  - ARTHRALGIA [None]
  - CONSTIPATION [None]
  - NAUSEA [None]
